FAERS Safety Report 6753400-9 (Version None)
Quarter: 2010Q2

REPORT INFORMATION
  Report Type: 
  Country: None (occurrence: None)
  Receive Date: 20100520
  Receipt Date: 20090916
  Transmission Date: 20101027
  Serious: Yes (Other)
  Sender: FDA-Public Use
  Company Number: 2009271117

PATIENT
  Age: 71 Year
  Sex: Female

DRUGS (8)
  1. MEDROXYPROGESTERONE ACETATE [Suspect]
     Indication: HORMONE REPLACEMENT THERAPY
     Dosage: 2.5 MG, ORAL
     Route: 048
     Dates: start: 19960401, end: 19960601
  2. PREMARIN [Suspect]
     Indication: HORMONE REPLACEMENT THERAPY
     Dosage: 0.625 MG
     Dates: start: 19950401, end: 19961001
  3. PREMPRO [Suspect]
     Indication: HORMONE REPLACEMENT THERAPY
     Dosage: 0.625MG,2.5MG 0.625/2.5MG
     Dates: start: 19951121, end: 19961008
  4. PREMPRO [Suspect]
     Indication: HORMONE REPLACEMENT THERAPY
     Dosage: 0.625MG,2.5MG 0.625/2.5MG
     Dates: start: 20001119
  5. CYCRIN [Suspect]
     Indication: HORMONE REPLACEMENT THERAPY
     Dosage: 2.5 MG
     Dates: start: 19951121, end: 19961008
  6. VASOTEC [Concomitant]
  7. HYDROCHLOROTHIAZIDE [Concomitant]
  8. ENALAPRIL MALEATE [Concomitant]

REACTIONS (1)
  - BREAST CANCER FEMALE [None]
